FAERS Safety Report 5950926-2 (Version None)
Quarter: 2008Q4

REPORT INFORMATION
  Report Type: 
  Country: None (occurrence: None)
  Receive Date: 20081112
  Receipt Date: 20081104
  Transmission Date: 20090506
  Serious: Yes (Other)
  Sender: FDA-Public Use
  Company Number: US-PFIZER INC-2008081957

PATIENT
  Sex: Female
  Weight: 64 kg

DRUGS (7)
  1. GEODON [Suspect]
     Indication: BIPOLAR II DISORDER
     Route: 048
     Dates: start: 20080918
  2. WELLBUTRIN [Concomitant]
  3. YASMIN [Concomitant]
  4. SEROQUEL [Concomitant]
  5. LAMICTAL [Concomitant]
  6. TRILEPTAL [Concomitant]
  7. PERI-COLACE [Concomitant]

REACTIONS (5)
  - BIPOLAR DISORDER [None]
  - FEELING ABNORMAL [None]
  - HEART RATE INCREASED [None]
  - TENSION [None]
  - VEIN DISORDER [None]
